FAERS Safety Report 8840845 (Version 25)
Quarter: 2017Q1

REPORT INFORMATION
  Report Type: Report from Study
  Country: CA (occurrence: CA)
  Receive Date: 20121015
  Receipt Date: 20170204
  Transmission Date: 20170429
  Serious: Yes (Hospitalization)
  Sender: FDA-Public Use
  Company Number: PHHY2011CA87916

PATIENT
  Age: 55 Year
  Sex: Female

DRUGS (7)
  1. SANDOSTATIN LAR DEPOT [Suspect]
     Active Substance: OCTREOTIDE ACETATE
     Dosage: 20 MG, QMO
     Route: 030
     Dates: start: 20131023
  2. SANDOSTATIN LAR DEPOT [Suspect]
     Active Substance: OCTREOTIDE ACETATE
     Dosage: 30 MG, QMO (ONCE A MONTH)
     Route: 030
     Dates: start: 20160228
  3. SANDOSTATIN [Suspect]
     Active Substance: OCTREOTIDE ACETATE
     Indication: PANCREATIC ISLETS HYPERPLASIA
     Dosage: UNKNOWN DOSE, BID
     Route: 058
     Dates: start: 20110411
  4. SANDOSTATIN LAR DEPOT [Suspect]
     Active Substance: OCTREOTIDE ACETATE
     Dosage: 30 MG, QMO (ONCE A MONTH)
     Route: 030
     Dates: start: 20141119
  5. SANDOSTATIN LAR DEPOT [Suspect]
     Active Substance: OCTREOTIDE ACETATE
     Indication: PANCREATIC ISLETS HYPERPLASIA
     Dosage: 30 MG, QMO
     Route: 030
     Dates: start: 20110513
  6. PROLIA [Suspect]
     Active Substance: DENOSUMAB
     Indication: OSTEOPOROSIS
     Dosage: UNK
     Route: 065
  7. SANDOSTATIN LAR DEPOT [Suspect]
     Active Substance: OCTREOTIDE ACETATE
     Dosage: 30 MG, QMO, EVERY 4 WEEKS
     Route: 030
     Dates: start: 20131210

REACTIONS (26)
  - Pleural effusion [Unknown]
  - Breast pain [Unknown]
  - Bone deformity [Unknown]
  - Fatigue [Unknown]
  - Pancreatic disorder [Unknown]
  - General physical health deterioration [Unknown]
  - Metabolic disorder [Unknown]
  - Anaemia [Unknown]
  - Hypovitaminosis [Unknown]
  - Thrombophlebitis [Unknown]
  - Blood pressure increased [Unknown]
  - Fall [Unknown]
  - Sleep disorder [Unknown]
  - Musculoskeletal pain [Unknown]
  - Contusion [Unknown]
  - Lung disorder [Unknown]
  - Haematoma [Unknown]
  - Product use issue [Unknown]
  - Rib fracture [Unknown]
  - Coma [Unknown]
  - Pulmonary embolism [Unknown]
  - Hypoglycaemia [Not Recovered/Not Resolved]
  - Clostridium difficile infection [Unknown]
  - Malaise [Unknown]
  - Gait disturbance [Unknown]
  - Pain in extremity [Unknown]

NARRATIVE: CASE EVENT DATE: 20110513
